FAERS Safety Report 18406499 (Version 1)
Quarter: 2020Q4

REPORT INFORMATION
  Report Type: Spontaneous
  Country: GB (occurrence: GB)
  Receive Date: 20201020
  Receipt Date: 20201020
  Transmission Date: 20210114
  Serious: Yes (Other)
  Sender: FDA-Public Use
  Company Number: GB-MYLANLABS-2020M1087869

PATIENT
  Age: 25 Year
  Sex: Male

DRUGS (1)
  1. MIRTAZAPINE. [Suspect]
     Active Substance: MIRTAZAPINE
     Indication: PRODUCT USED FOR UNKNOWN INDICATION
     Dosage: ONE TO BE TAKEN ONCE A DAY FOR TWO WEEKS AND THEN 2 FOR TWO WEEKS
     Route: 048

REACTIONS (4)
  - Anxiety [Unknown]
  - Accidental overdose [Unknown]
  - Product dispensing error [Unknown]
  - Tachycardia [Unknown]
